FAERS Safety Report 11947060 (Version 2)
Quarter: 2016Q1

REPORT INFORMATION
  Report Type: Spontaneous
  Country: US (occurrence: US)
  Receive Date: 20160125
  Receipt Date: 20160219
  Transmission Date: 20160526
  Serious: Yes (Other)
  Sender: FDA-Public Use
  Company Number: US-AUROBINDO-AUR-APU-2016-00267

PATIENT
  Age: 52 Year
  Sex: Female
  Weight: 43.54 kg

DRUGS (5)
  1. SERTRALINE HYDROCHLORIDE TABLETS [Suspect]
     Active Substance: SERTRALINE HYDROCHLORIDE
     Indication: DEPRESSION
     Dosage: 50 MG, UNK
     Route: 065
  2. LORAZEPAM. [Concomitant]
     Active Substance: LORAZEPAM
     Indication: PRODUCT USED FOR UNKNOWN INDICATION
     Dosage: 0.5 MG, UNK
     Route: 065
  3. XANAX [Concomitant]
     Active Substance: ALPRAZOLAM
     Indication: PRODUCT USED FOR UNKNOWN INDICATION
     Route: 065
  4. SERTRALINE HYDROCHLORIDE TABLETS [Suspect]
     Active Substance: SERTRALINE HYDROCHLORIDE
     Dosage: 50 MG, TWO TIMES A DAY
     Route: 065
  5. SERTRALINE HYDROCHLORIDE TABLETS [Suspect]
     Active Substance: SERTRALINE HYDROCHLORIDE
     Indication: HOT FLUSH
     Dosage: 75 MG, UNK
     Route: 065

REACTIONS (2)
  - Seizure [Recovering/Resolving]
  - Feeling abnormal [Recovering/Resolving]
